FAERS Safety Report 8559419 (Version 2)
Quarter: 2014Q2

REPORT INFORMATION
  Report Type: Spontaneous
  Country: GB (occurrence: GB)
  Receive Date: 20120513
  Receipt Date: 20140616
  Transmission Date: 20141212
  Serious: Yes (Disabling, Other)
  Sender: FDA-Public Use
  Company Number: GB-TEVA-336412ISR

PATIENT
  Age: 48 Year
  Sex: Female
  Weight: 77 kg

DRUGS (10)
  1. CARBOPLATIN [Suspect]
     Indication: OVARIAN ENDOMETRIOID CARCINOMA
     Dosage: 740MG Q21D (5 CYCLES),3-WEEKLY CARBOPLATIN AUC 6 (TOTAL DOSE 740MG)
     Route: 042
     Dates: start: 20110801, end: 20111107
  2. PACLITAXEL [Suspect]
     Indication: OVARIAN ENDOMETRIOID CARCINOMA
     Dosage: WEEKLY PACLITAXEL 80MG/M2 (TOTAL DOSE 150MG)
  3. ONDANSETRON [Concomitant]
  4. DEXAMETHASONE [Concomitant]
  5. DOMPERIDONE [Concomitant]
  6. RANITIDINE [Concomitant]
  7. PARACETAMOL [Concomitant]
  8. OMEPRAZOLE [Concomitant]
  9. FERROUS SULPHATE [Concomitant]
  10. CODEINE PHOSPHATE [Concomitant]

REACTIONS (7)
  - Visual impairment [Recovered/Resolved with Sequelae]
  - Retinal haemorrhage [Unknown]
  - Papilloedema [Not Recovered/Not Resolved]
  - Vision blurred [Unknown]
  - Visual acuity reduced [Recovering/Resolving]
  - Optic atrophy [Unknown]
  - Type I hypersensitivity [Unknown]
